FAERS Safety Report 9447490 (Version 4)
Quarter: 2014Q1

REPORT INFORMATION
  Report Type: Spontaneous
  Country: US (occurrence: US)
  Receive Date: 20130808
  Receipt Date: 20140320
  Transmission Date: 20141002
  Serious: No
  Sender: FDA-Public Use
  Company Number: US-PFIZER INC-2013227000

PATIENT
  Age: 79 Year
  Sex: Female
  Weight: 91.61 kg

DRUGS (18)
  1. SUTENT [Suspect]
     Indication: METASTATIC RENAL CELL CARCINOMA
     Dosage: 50 MG, DAILY (28 DAYS THEN 14 DAYS OFF )
     Route: 048
     Dates: start: 20110805
  2. SUTENT [Suspect]
     Dosage: 50 MG, DAILY
     Route: 048
     Dates: start: 20110816
  3. SUTENT [Suspect]
     Dosage: UNK
     Dates: end: 20110829
  4. SUTENT [Suspect]
     Dosage: 50 MG, DAILY
     Dates: start: 20110816, end: 20110819
  5. XGEVA [Concomitant]
     Indication: METASTATIC RENAL CELL CARCINOMA
     Dosage: MONTHLY X 1
     Dates: start: 201108
  6. PREDNISONE [Concomitant]
     Dosage: UNK
  7. METFORMIN HYDROCHLORIDE [Concomitant]
     Dosage: 500 MG, 2X/DAY
     Route: 048
     Dates: start: 20110525
  8. CELEXA [Concomitant]
     Dosage: 20 MG, 1X/DAY (40MG TABLET 1 ORAL QD WITH 1/2 OF 20MG)
     Route: 048
     Dates: start: 20110302
  9. CELEXA [Concomitant]
     Dosage: 50 MG, 1X/DAY (20MG TABLET 1/2 ORAL DAILY WITH 40MG TAB ,TOTAL 50MG) )
     Route: 048
     Dates: start: 20110525
  10. CALCIUM + VIT D [Concomitant]
     Dosage: 1 DF, 2X/DAY
     Route: 048
     Dates: start: 20090526
  11. SYNTHROID [Concomitant]
     Dosage: 75 UG, (TABLET 1 ONE ORAL Q AM)
     Route: 048
     Dates: start: 20110525
  12. ACETAMINOPHEN W/OXYCODONE [Concomitant]
     Dosage: (OXYCODONE 5 MG -ACETAMINOPHEN 325MG, TABLET 1 ORAL A 4 HRS PRN
     Route: 048
     Dates: start: 20110809
  13. PROCHLORPERAZINE MALEATE [Concomitant]
     Dosage: 10 MG, TABLET 1 EVERY 4 TO 6 HOURS PRN
     Route: 048
     Dates: start: 20110809
  14. BACTRIM DS [Concomitant]
     Dosage: TABLET 1 TWO TIMES DAILY
     Route: 048
     Dates: start: 20110810
  15. IRON [Concomitant]
     Dosage: 1 DAILY
     Route: 048
  16. ASPIRIN EC [Concomitant]
     Dosage: UNK
     Route: 048
  17. GLUCOSAMINE HYDROCHLORIDE/CHONDROITIN SULFATE [Concomitant]
     Dosage: 1 DF, 2X/DAY
     Route: 048
  18. VITAMIN E [Concomitant]
     Dosage: AT BEDTIME
     Route: 048

REACTIONS (13)
  - Stomatitis [Unknown]
  - Nausea [Unknown]
  - Asthenia [Unknown]
  - Pyrexia [Recovered/Resolved]
  - Depression [Unknown]
  - Rash erythematous [Unknown]
  - Anorectal discomfort [Unknown]
  - Dysuria [Unknown]
  - Pain [Recovering/Resolving]
  - Hypertension [Unknown]
  - Dry skin [Unknown]
  - Skin exfoliation [Unknown]
  - Candida infection [Unknown]
